FAERS Safety Report 9450919 (Version 1)
Quarter: 2013Q3

REPORT INFORMATION
  Report Type: Spontaneous
  Country: SE (occurrence: None)
  Receive Date: 20130807
  Receipt Date: 20130807
  Transmission Date: 20140515
  Serious: Yes (Other)
  Sender: FDA-Public Use
  Company Number: 2013-3180

PATIENT
  Age: 54 Year
  Sex: Female

DRUGS (1)
  1. SOMATULINE [Suspect]
     Indication: PRODUCT USED FOR UNKNOWN INDICATION
     Dosage: 1 IN 28D
     Dates: start: 2009

REACTIONS (2)
  - Type 1 diabetes mellitus [None]
  - Gastrointestinal haemorrhage [None]
